FAERS Safety Report 5829639-3 (Version None)
Quarter: 2008Q3

REPORT INFORMATION
  Report Type: 
  Country: None (occurrence: None)
  Receive Date: 20080729
  Receipt Date: 20080716
  Transmission Date: 20090109
  Serious: Yes (Hospitalization)
  Sender: FDA-Public Use
  Company Number: 2008BI005602

PATIENT
  Age: 64 Year
  Sex: Female
  Weight: 47.6277 kg

DRUGS (2)
  1. AVONEX [Suspect]
     Indication: MULTIPLE SCLEROSIS
     Dosage: 30 UG;QW;IM, 30 UG;QW;IM
     Route: 030
     Dates: start: 20020101
  2. AVONEX [Suspect]
     Indication: MULTIPLE SCLEROSIS
     Dosage: 30 UG;QW;IM, 30 UG;QW;IM
     Route: 030
     Dates: start: 20030101

REACTIONS (4)
  - ADVERSE DRUG REACTION [None]
  - CAROTID ARTERY OCCLUSION [None]
  - ISCHAEMIC STROKE [None]
  - MUSCLE SPASTICITY [None]
